FAERS Safety Report 5339525-3 (Version None)
Quarter: 2007Q2

REPORT INFORMATION
  Report Type: 
  Country: None (occurrence: None)
  Receive Date: 20070404
  Receipt Date: 20060222
  Transmission Date: 20071010
  Serious: Yes (Other)
  Sender: FDA-Public Use
  Company Number: 2006028812

PATIENT
  Age: 38 Year
  Sex: Female

DRUGS (2)
  1. GEODON [Suspect]
     Indication: ILL-DEFINED DISORDER
     Dosage: 1 IN 1 D
  2. KLONOPIN [Concomitant]

REACTIONS (2)
  - COORDINATION ABNORMAL [None]
  - FALL [None]
